FAERS Safety Report 10693777 (Version 3)
Quarter: 2015Q1

REPORT INFORMATION
  Report Type: Spontaneous
  Country: TR (occurrence: TR)
  Receive Date: 20150106
  Receipt Date: 20150116
  Transmission Date: 20150721
  Serious: Yes (Hospitalization)
  Sender: FDA-Public Use
  Company Number: TR-PFIZER INC-2015002855

PATIENT
  Age: 18 Year
  Sex: Female

DRUGS (2)
  1. SERTRALINE HCL [Suspect]
     Active Substance: SERTRALINE HYDROCHLORIDE
     Dosage: UNK
  2. LAMOTRIGINE. [Suspect]
     Active Substance: LAMOTRIGINE
     Dosage: UNK

REACTIONS (8)
  - Altered state of consciousness [Recovering/Resolving]
  - Toxicity to various agents [Recovering/Resolving]
  - Disorientation [Recovering/Resolving]
  - Myoclonus [Recovering/Resolving]
  - Abnormal behaviour [Recovering/Resolving]
  - Nystagmus [Recovering/Resolving]
  - Agitation [Recovering/Resolving]
  - Overdose [Recovering/Resolving]
